FAERS Safety Report 24560904 (Version 4)
Quarter: 2025Q3

REPORT INFORMATION
  Report Type: Spontaneous
  Country: US (occurrence: US)
  Receive Date: 20241029
  Receipt Date: 20250704
  Transmission Date: 20251021
  Serious: Yes (Other)
  Sender: SANOFI AVENTIS
  Company Number: US-SANOFI-02275420

PATIENT
  Age: 59 Year
  Sex: Male

DRUGS (16)
  1. DUPIXENT [Suspect]
     Active Substance: DUPILUMAB
     Indication: Nasal polyps
     Dosage: 300 MG, QOW
     Route: 058
     Dates: start: 20231109
  2. DUPIXENT [Suspect]
     Active Substance: DUPILUMAB
     Indication: Dermatitis atopic
  3. XTANDI [Concomitant]
     Active Substance: ENZALUTAMIDE
  4. TESTOSTERONE [Concomitant]
     Active Substance: TESTOSTERONE
  5. LISINOPRIL [Concomitant]
     Active Substance: LISINOPRIL
  6. ATORVASTATIN [Concomitant]
     Active Substance: ATORVASTATIN
  7. SYMBICORT [Concomitant]
     Active Substance: BUDESONIDE\FORMOTEROL FUMARATE DIHYDRATE
  8. MONTELUKAST [Concomitant]
     Active Substance: MONTELUKAST
  9. ATORVASTATIN [Concomitant]
     Active Substance: ATORVASTATIN
  10. DARZALEX FASPRO [DARATUMUMAB;HYALURONIDASE FIHJ] [Concomitant]
  11. ACYCLOVIR [Concomitant]
     Active Substance: ACYCLOVIR
  12. ASPIRIN [Concomitant]
     Active Substance: ASPIRIN
  13. HYDROCHLOROTHIAZIDE [Concomitant]
     Active Substance: HYDROCHLOROTHIAZIDE
  14. DEXAMETHASONE [Concomitant]
     Active Substance: DEXAMETHASONE
  15. LEUPROLIDE ACETATE [Concomitant]
     Active Substance: LEUPROLIDE ACETATE
  16. LENALIDOMIDE [Concomitant]
     Active Substance: LENALIDOMIDE

REACTIONS (5)
  - Plasma cell myeloma [Unknown]
  - Flushing [Unknown]
  - Hot flush [Unknown]
  - Sleep disorder due to a general medical condition [Unknown]
  - Feeling hot [Unknown]

NARRATIVE: CASE EVENT DATE: 20240101
